FAERS Safety Report 16104198 (Version 1)
Quarter: 2019Q1

REPORT INFORMATION
  Report Type: Spontaneous
  Country: US (occurrence: US)
  Receive Date: 20190322
  Receipt Date: 20190322
  Transmission Date: 20190418
  Serious: No
  Sender: FDA-Public Use
  Company Number: US-PFIZER INC-2019118607

PATIENT
  Age: 58 Year
  Sex: Female

DRUGS (3)
  1. RELPAX [Suspect]
     Active Substance: ELETRIPTAN HYDROBROMIDE
     Indication: MIGRAINE
     Dosage: 40MG, 1 OR 2 TABLETS, DAILY
     Route: 048
  2. IMITREX [Concomitant]
     Active Substance: SUMATRIPTAN SUCCINATE
     Indication: MIGRAINE-TRIGGERED SEIZURE
     Dosage: 100 MG, DAILY
     Route: 048
  3. RELPAX [Suspect]
     Active Substance: ELETRIPTAN HYDROBROMIDE
     Indication: EPILEPSY

REACTIONS (1)
  - Headache [Not Recovered/Not Resolved]
